FAERS Safety Report 9171286 (Version 1)
Quarter: 2013Q1

REPORT INFORMATION
  Report Type: Spontaneous
  Country: US (occurrence: None)
  Receive Date: 20130318
  Receipt Date: 20130318
  Transmission Date: 20140127
  Serious: Yes (Other)
  Sender: FDA-Public Use
  Company Number: None

PATIENT
  Age: 16 Month
  Sex: Female
  Weight: 7.5 kg

DRUGS (1)
  1. PALIVIZUMAB [Suspect]
     Indication: PREMATURE BABY
     Route: 030
     Dates: start: 20130212, end: 20130212

REACTIONS (1)
  - Anaphylactic reaction [None]
